FAERS Safety Report 6626571-2 (Version None)
Quarter: 2010Q1

REPORT INFORMATION
  Report Type: 
  Country: None (occurrence: None)
  Receive Date: 20100310
  Receipt Date: 20100304
  Transmission Date: 20100710
  Serious: Yes (Other)
  Sender: FDA-Public Use
  Company Number: US-JNJCH-2010005642

PATIENT
  Age: 42 Year
  Sex: Female

DRUGS (1)
  1. LISTERINE ANTISEPTIC MOUTHWASH [Suspect]
     Indication: ALCOHOLISM
     Dosage: TEXT:3 TO 4 SWIGS
     Route: 048

REACTIONS (2)
  - DRUG ABUSE [None]
  - INCORRECT ROUTE OF DRUG ADMINISTRATION [None]
